FAERS Safety Report 13660827 (Version 4)
Quarter: 2017Q3

REPORT INFORMATION
  Report Type: Spontaneous
  Country: KR (occurrence: KR)
  Receive Date: 20170616
  Receipt Date: 20170828
  Transmission Date: 20171127
  Serious: Yes (Other)
  Sender: FDA-Public Use
  Company Number: KR-009507513-1702KOR001747

PATIENT
  Age: 53 Year
  Sex: Female
  Weight: 56.7 kg

DRUGS (42)
  1. EMEND (FOSAPREPITANT DIMEGLUMINE) [Suspect]
     Active Substance: FOSAPREPITANT DIMEGLUMINE
     Dosage: 150 MG, ONCE
     Route: 042
     Dates: start: 20160719, end: 20160719
  2. DEXAMETHASONE SODIUM PHOSPHATE. [Concomitant]
     Active Substance: DEXAMETHASONE SODIUM PHOSPHATE
     Indication: PROPHYLAXIS OF NAUSEA AND VOMITING
     Dosage: 5 MG, ONCE (STRENGTH: 5 MG/ML)
     Route: 042
     Dates: start: 20160503, end: 20160503
  3. SYNTHYROID TAB [Concomitant]
     Indication: HYPOTHYROIDISM
     Dosage: 1 TABLET, QD
     Route: 048
     Dates: start: 20160419
  4. CURAN TAB [Concomitant]
     Indication: PROPHYLAXIS
     Dosage: 1 TABLET, QD
     Route: 048
     Dates: start: 20160503, end: 20160504
  5. MACPERAN [Concomitant]
     Active Substance: METOCLOPRAMIDE HYDROCHLORIDE
     Indication: PROPHYLAXIS AGAINST GASTROINTESTINAL ULCER
     Dosage: 2 ML, BID
     Route: 042
     Dates: start: 20160503, end: 20160504
  6. MAGMIL [Concomitant]
     Active Substance: MAGNESIUM HYDROXIDE
     Indication: CONSTIPATION PROPHYLAXIS
     Dosage: 1 TABLET, TID
     Route: 048
     Dates: start: 20160513
  7. ENDOXAN [Concomitant]
     Active Substance: CYCLOPHOSPHAMIDE
     Indication: BREAST CANCER
     Dosage: 960 MG, ONCE; CYCLE 1
     Route: 042
     Dates: start: 20160503, end: 20160503
  8. ENDOXAN [Concomitant]
     Active Substance: CYCLOPHOSPHAMIDE
     Dosage: 960 MG, ONCE; CYCLE 4
     Route: 042
     Dates: start: 20160719, end: 20160719
  9. ZYPREXA ZYDIS [Concomitant]
     Active Substance: OLANZAPINE
     Indication: PROPHYLAXIS
     Dosage: 1 TABLET, QD
     Route: 048
     Dates: start: 20160504, end: 20160510
  10. AD MYCIN VIAL [Concomitant]
     Dosage: 96 MG, ONCE; CYCLE 3 (STRENGTH: 50 MG / 25 ML)
     Route: 042
     Dates: start: 20160621, end: 20160621
  11. ENDOXAN [Concomitant]
     Active Substance: CYCLOPHOSPHAMIDE
     Dosage: 960 MG, ONCE; CYCLE 2
     Route: 042
     Dates: start: 20160528, end: 20160528
  12. DEXAMETHASONE SODIUM PHOSPHATE. [Concomitant]
     Active Substance: DEXAMETHASONE SODIUM PHOSPHATE
     Dosage: 5 MG, ONCE (STRENGTH: 5 MG/ML)
     Route: 042
     Dates: start: 20160621, end: 20160621
  13. DEXAMETHASONE SODIUM PHOSPHATE. [Concomitant]
     Active Substance: DEXAMETHASONE SODIUM PHOSPHATE
     Dosage: 5 MG, ONCE (STRENGTH: 5 MG/ML)
     Route: 042
     Dates: start: 20160719, end: 20160719
  14. CURAN TAB [Concomitant]
     Dosage: 1 TABLET, QD
     Route: 048
     Dates: start: 20160528, end: 20160604
  15. ZYPREXA ZYDIS [Concomitant]
     Active Substance: OLANZAPINE
     Dosage: 1 TABLET, QD
     Route: 048
     Dates: start: 20160719, end: 20160727
  16. MACPERAN [Concomitant]
     Active Substance: METOCLOPRAMIDE HYDROCHLORIDE
     Dosage: 2 ML, BID
     Route: 042
     Dates: start: 20160718, end: 20160720
  17. PLAKON [Concomitant]
     Dosage: 1.5 MG, BID (STRENGTH: 3MG/2ML)
     Route: 030
     Dates: start: 20160528, end: 20160528
  18. PLAKON [Concomitant]
     Dosage: 1.5 MG, BID (STRENGTH: 3MG/2ML)
     Route: 030
     Dates: start: 20160718, end: 20160720
  19. EMEND (FOSAPREPITANT DIMEGLUMINE) [Suspect]
     Active Substance: FOSAPREPITANT DIMEGLUMINE
     Dosage: 150 MG, ONCE
     Route: 042
     Dates: start: 20160528, end: 20160528
  20. ALOXI [Concomitant]
     Active Substance: PALONOSETRON HYDROCHLORIDE
     Indication: PROPHYLAXIS OF NAUSEA AND VOMITING
     Dosage: 0.25 MG, ONCE
     Route: 042
     Dates: start: 20160503, end: 20160503
  21. CURAN TAB [Concomitant]
     Dosage: 1 TABLET, BID
     Route: 048
     Dates: start: 20160622, end: 20160626
  22. PLAKON [Concomitant]
     Dosage: 1.5 MG, BID (STRENGTH: 3MG/2ML)
     Route: 030
     Dates: start: 20160621, end: 20160622
  23. SYLCON [Concomitant]
     Indication: CONSTIPATION PROPHYLAXIS
     Dosage: 1 TABLET,BID
     Route: 048
     Dates: start: 20160513
  24. EMEND (FOSAPREPITANT DIMEGLUMINE) [Suspect]
     Active Substance: FOSAPREPITANT DIMEGLUMINE
     Dosage: 150 MG, ONCE
     Route: 042
     Dates: start: 20160621, end: 20160621
  25. AD MYCIN VIAL [Concomitant]
     Dosage: 96 MG, ONCE; CYCLE 4 (STRENGTH: 50 MG / 25 ML)
     Route: 042
     Dates: start: 20160719, end: 20160719
  26. MACPERAN [Concomitant]
     Active Substance: METOCLOPRAMIDE HYDROCHLORIDE
     Dosage: 1 TABLET, TID
     Route: 048
     Dates: start: 20160622, end: 20160626
  27. EMEND (FOSAPREPITANT DIMEGLUMINE) [Suspect]
     Active Substance: FOSAPREPITANT DIMEGLUMINE
     Indication: PROPHYLAXIS OF NAUSEA AND VOMITING
     Dosage: 150 MG, ONCE
     Route: 042
     Dates: start: 20160503, end: 20160503
  28. AD MYCIN VIAL [Concomitant]
     Dosage: 96 MG, ONCE; CYCLE 2 (STRENGTH: 50 MG / 25 ML)
     Route: 042
     Dates: start: 20160528, end: 20160528
  29. ENDOXAN [Concomitant]
     Active Substance: CYCLOPHOSPHAMIDE
     Dosage: 960 MG, ONCE; CYCLE 3
     Route: 042
     Dates: start: 20160621, end: 20160621
  30. ALOXI [Concomitant]
     Active Substance: PALONOSETRON HYDROCHLORIDE
     Dosage: 0.25 MG, ONCE
     Route: 042
     Dates: start: 20160528, end: 20160528
  31. ALOXI [Concomitant]
     Active Substance: PALONOSETRON HYDROCHLORIDE
     Dosage: 0.25 MG, ONCE
     Route: 042
     Dates: start: 20160621, end: 20160621
  32. ALOXI [Concomitant]
     Active Substance: PALONOSETRON HYDROCHLORIDE
     Dosage: 0.25 MG, ONCE
     Route: 042
     Dates: start: 20160719, end: 20160719
  33. MACPERAN [Concomitant]
     Active Substance: METOCLOPRAMIDE HYDROCHLORIDE
     Indication: PROPHYLAXIS AGAINST GASTROINTESTINAL ULCER
     Dosage: 1 TABLET, TID
     Route: 048
     Dates: start: 20160504, end: 20160508
  34. MACPERAN [Concomitant]
     Active Substance: METOCLOPRAMIDE HYDROCHLORIDE
     Dosage: 1 TABLET, TID
     Route: 048
     Dates: start: 20160720, end: 20160724
  35. PLAKON [Concomitant]
     Indication: ALLERGY PROPHYLAXIS
     Dosage: 1.5 MG, BID (STRENGTH: 3MG/2ML)
     Route: 030
     Dates: start: 20160503, end: 20160504
  36. AD MYCIN VIAL [Concomitant]
     Indication: BREAST CANCER
     Dosage: 96 MG, ONCE; CYCLE 1 (STRENGTH: 50 MG/25 ML)
     Route: 042
     Dates: start: 20160503, end: 20160503
  37. DEXAMETHASONE. [Concomitant]
     Active Substance: DEXAMETHASONE
     Indication: PROPHYLAXIS OF NAUSEA AND VOMITING
     Dosage: 0.5 MG, QD
     Route: 048
     Dates: start: 20160504, end: 20160506
  38. DEXAMETHASONE SODIUM PHOSPHATE. [Concomitant]
     Active Substance: DEXAMETHASONE SODIUM PHOSPHATE
     Dosage: 5 MG, ONCE (STRENGTH: 5 MG/ML)
     Route: 042
     Dates: start: 20160528, end: 20160528
  39. MACPERAN [Concomitant]
     Active Substance: METOCLOPRAMIDE HYDROCHLORIDE
     Dosage: 1 TABLET, TID
     Route: 048
     Dates: start: 20160530, end: 20160603
  40. MACPERAN [Concomitant]
     Active Substance: METOCLOPRAMIDE HYDROCHLORIDE
     Dosage: 2 ML, BID
     Route: 042
     Dates: start: 20160528, end: 20160530
  41. MACPERAN [Concomitant]
     Active Substance: METOCLOPRAMIDE HYDROCHLORIDE
     Dosage: 2 ML, BID
     Route: 042
     Dates: start: 20160621, end: 20160622
  42. DEXAMETHASONE. [Concomitant]
     Active Substance: DEXAMETHASONE
     Dosage: 0.5 MG, QD
     Route: 048
     Dates: start: 20160720, end: 20160722

REACTIONS (2)
  - Leukopenia [Recovered/Resolved]
  - Vomiting [Recovered/Resolved]

NARRATIVE: CASE EVENT DATE: 20160513
